FAERS Safety Report 6134753-1 (Version None)
Quarter: 2009Q1

REPORT INFORMATION
  Report Type: 
  Country: None (occurrence: None)
  Receive Date: 20090327
  Receipt Date: 20090317
  Transmission Date: 20090719
  Serious: Yes (Death, Hospitalization)
  Sender: FDA-Public Use
  Company Number: US-ROCHE-595757

PATIENT
  Sex: Male
  Weight: 99.3 kg

DRUGS (1)
  1. CAPECITABINE [Suspect]
     Dosage: TAKEN FOUR DOSE FORM DAILY.
     Route: 065
     Dates: start: 20081022

REACTIONS (6)
  - DEATH [None]
  - HOSPITALISATION [None]
  - OEDEMA PERIPHERAL [None]
  - PULMONARY OEDEMA [None]
  - PYREXIA [None]
  - WHITE BLOOD CELL COUNT DECREASED [None]
